FAERS Safety Report 5653801-6 (Version None)
Quarter: 2008Q1

REPORT INFORMATION
  Report Type: 
  Country: None (occurrence: None)
  Receive Date: 20080206
  Receipt Date: 20070323
  Transmission Date: 20080703
  Serious: Yes (Hospitalization, Other)
  Sender: FDA-Public Use
  Company Number: US200701003520

PATIENT
  Age: 54 Year
  Sex: Female
  Weight: 65.8 kg

DRUGS (3)
  1. EVISTA [Suspect]
     Indication: OSTEOPOROSIS
     Dosage: 60 MG,ONCE DAILY, ORAL
     Route: 048
     Dates: start: 20060901, end: 20061212
  2. SYNTHROID [Concomitant]
  3. CALCIUM CARBONATE (CALCIUM CARBONATE) [Concomitant]

REACTIONS (1)
  - DEEP VEIN THROMBOSIS [None]
